FAERS Safety Report 19488277 (Version 1)
Quarter: 2021Q3

REPORT INFORMATION
  Report Type: Spontaneous
  Country: AU (occurrence: AU)
  Receive Date: 20210702
  Receipt Date: 20210702
  Transmission Date: 20211014
  Serious: Yes (Hospitalization, Other)
  Sender: FDA-Public Use
  Company Number: AU-SUNOVION-2021DSP009197

PATIENT
  Age: 38 Year
  Sex: Male

DRUGS (18)
  1. LATUDA [Suspect]
     Active Substance: LURASIDONE HYDROCHLORIDE
     Indication: PRODUCT USED FOR UNKNOWN INDICATION
     Dosage: 40 MG, QD
     Route: 048
     Dates: start: 20210220
  2. CLONAZEPAM. [Suspect]
     Active Substance: CLONAZEPAM
     Indication: PRODUCT USED FOR UNKNOWN INDICATION
     Dosage: 1 MG, QOD
     Route: 065
  3. ASENAPINE. [Suspect]
     Active Substance: ASENAPINE
     Dosage: 5 MG, IN THE MORNING WITH AN INTERVAL OF 1 DAY
     Route: 060
  4. CLOZAPINE. [Suspect]
     Active Substance: CLOZAPINE
     Indication: SCHIZOPHRENIA
     Dosage: 100 MG, QOD
     Route: 048
     Dates: start: 20160302, end: 20210128
  5. LORAZEPAM. [Concomitant]
     Active Substance: LORAZEPAM
     Dosage: UNK
     Route: 065
  6. MIRTAZAPINE. [Suspect]
     Active Substance: MIRTAZAPINE
     Indication: DEPRESSED MOOD
     Dosage: 30 MG, QOD
     Route: 065
  7. TERBUTALINE SULFATE. [Concomitant]
     Active Substance: TERBUTALINE SULFATE
     Dosage: UNK
     Route: 065
  8. OLANZAPINE. [Concomitant]
     Active Substance: OLANZAPINE
     Dosage: UNK
     Route: 065
  9. BUDESONIDE. [Concomitant]
     Active Substance: BUDESONIDE
     Dosage: UNK
     Route: 065
  10. DESVENLAFAXINE. [Suspect]
     Active Substance: DESVENLAFAXINE
     Indication: PRODUCT USED FOR UNKNOWN INDICATION
     Dosage: 200 MG, IN THE MORNING WITH AN INTERVAL OF 1 DAY
     Route: 065
  11. TRIMETHOPRIM. [Suspect]
     Active Substance: TRIMETHOPRIM
     Indication: PRODUCT USED FOR UNKNOWN INDICATION
     Dosage: 300 MG
     Route: 065
     Dates: start: 20210219, end: 20210226
  12. CLOZAPINE. [Suspect]
     Active Substance: CLOZAPINE
     Dosage: 325 MG
     Route: 048
  13. ASENAPINE. [Suspect]
     Active Substance: ASENAPINE
     Indication: PRODUCT USED FOR UNKNOWN INDICATION
     Dosage: 10 MG, AT NIGHT WITH AN INTERVAL OF 1 DAY
     Route: 060
  14. LATUDA [Suspect]
     Active Substance: LURASIDONE HYDROCHLORIDE
     Dosage: 60 MG, QD
     Route: 048
     Dates: start: 20210223
  15. LATUDA [Suspect]
     Active Substance: LURASIDONE HYDROCHLORIDE
     Dosage: 80 MG, QD
     Route: 048
     Dates: start: 20210302
  16. ARIPIPRAZOLE. [Suspect]
     Active Substance: ARIPIPRAZOLE
     Indication: PRODUCT USED FOR UNKNOWN INDICATION
     Dosage: 20 MG, QOD
     Route: 065
     Dates: end: 20210220
  17. MIRTAZAPINE. [Suspect]
     Active Substance: MIRTAZAPINE
     Dosage: 45 MG, QOD
     Route: 065
     Dates: start: 20210308
  18. ASENAPINE. [Suspect]
     Active Substance: ASENAPINE
     Dosage: 5 MG,TWICE DAILY WITH AN INTERVAL OF 1 DAY
     Route: 060
     Dates: start: 20210318

REACTIONS (12)
  - Anxiety [Unknown]
  - Delusion [Unknown]
  - Neutrophil count decreased [Recovered/Resolved]
  - Weight abnormal [Recovering/Resolving]
  - Sedation [Recovering/Resolving]
  - Quality of life decreased [Unknown]
  - Vomiting [Unknown]
  - Off label use [Unknown]
  - Psychotic disorder [Unknown]
  - Depressed mood [Unknown]
  - White blood cell count decreased [Recovered/Resolved]
  - Paranoia [Unknown]

NARRATIVE: CASE EVENT DATE: 2016
